FAERS Safety Report 11298967 (Version 1)
Quarter: 2015Q3

REPORT INFORMATION
  Report Type: Spontaneous
  Country: US (occurrence: US)
  Receive Date: 20150722
  Receipt Date: 20150722
  Transmission Date: 20151125
  Serious: No
  Sender: FDA-Public Use
  Company Number: US-ELI_LILLY_AND_COMPANY-US201203000629

PATIENT
  Sex: Male
  Weight: 34.02 kg

DRUGS (6)
  1. RISPERDAL [Concomitant]
     Active Substance: RISPERIDONE
     Dosage: UNK, UNKNOWN
  2. GUANFACINE. [Concomitant]
     Active Substance: GUANFACINE
     Dosage: UNK, UNKNOWN
  3. CLARITIN [Concomitant]
     Active Substance: LORATADINE
  4. HUMATROPE [Suspect]
     Active Substance: SOMATROPIN
     Indication: BODY HEIGHT BELOW NORMAL
     Dosage: 1.8 MG, QD
     Route: 058
     Dates: start: 200507, end: 20100610
  5. HUMATROPE [Suspect]
     Active Substance: SOMATROPIN
     Dosage: 1.8 MG, QD
     Route: 058
     Dates: start: 20101006
  6. FLUVOXAMINE [Concomitant]
     Active Substance: FLUVOXAMINE
     Dosage: UNK, UNKNOWN

REACTIONS (1)
  - Migraine [Not Recovered/Not Resolved]
